FAERS Safety Report 6467552-1 (Version None)
Quarter: 2009Q4

REPORT INFORMATION
  Report Type: 
  Country: None (occurrence: None)
  Receive Date: 20091202
  Receipt Date: 20091120
  Transmission Date: 20100525
  Serious: Yes (Hospitalization)
  Sender: FDA-Public Use
  Company Number: US-WYE-H11593609

PATIENT
  Sex: Female
  Weight: 109.3 kg

DRUGS (23)
  1. BLINDED THERAPY [Suspect]
     Indication: DERMATOMYOSITIS
     Dosage: UNSPECIFIED
     Dates: start: 20090519, end: 20090909
  2. HYDROCODONE [Suspect]
     Dosage: UNSPECIFIED
     Route: 048
     Dates: start: 20090115
  3. LORAZEPAM [Suspect]
     Route: 048
     Dates: start: 20040901
  4. QUETIAPINE [Suspect]
     Route: 048
     Dates: start: 20090115
  5. SULFAMETHOXAZOLE [Suspect]
     Dosage: UNSPECIFIED
     Dates: start: 20080701
  6. NIFEDIPINE [Suspect]
     Route: 048
     Dates: start: 20070201
  7. FUROSEMIDE [Suspect]
     Route: 048
  8. CITALOPRAM HYDROBROMIDE [Suspect]
     Route: 048
     Dates: start: 20050801
  9. EFFEXOR [Suspect]
     Route: 048
     Dates: start: 20040701
  10. POTASSIUM [Concomitant]
     Dosage: 20 MEQ EVERY
     Route: 048
  11. DIPHENHYDRAMINE HYDROCHLORIDE [Concomitant]
     Dosage: UNSPECIFIED
     Dates: start: 20090401
  12. PANTOPRAZOLE [Concomitant]
     Route: 048
     Dates: start: 20090601
  13. ALENDRONATE SODIUM [Concomitant]
     Route: 048
     Dates: start: 20090714
  14. ERGOCALCIFEROL [Concomitant]
     Route: 048
     Dates: start: 20090625
  15. CALCIUM [Concomitant]
     Route: 048
     Dates: start: 20090625
  16. ALBUTEROL [Concomitant]
     Dosage: UNSPECIFIED
     Route: 048
     Dates: start: 20090528
  17. METFORMIN HCL [Concomitant]
     Route: 048
     Dates: start: 20090625
  18. PNEUMOCOCCAL VACCINE [Concomitant]
     Dosage: UNSPECIFIED
     Route: 058
     Dates: start: 20090911, end: 20090911
  19. PREDNISONE [Concomitant]
     Dates: start: 20080519
  20. CYCLOSPORINE [Concomitant]
  21. CELEXA [Concomitant]
  22. JANUMET [Suspect]
     Dosage: UNKNOWN
     Route: 065
     Dates: start: 20080701
  23. ESOMEPRAZOLE [Suspect]
     Route: 048
     Dates: start: 20040901

REACTIONS (1)
  - GASTROENTERITIS VIRAL [None]
